FAERS Safety Report 7388816-3 (Version None)
Quarter: 2011Q2

REPORT INFORMATION
  Report Type: 
  Country: None (occurrence: None)
  Receive Date: 20110401
  Receipt Date: 20110322
  Transmission Date: 20111010
  Serious: Yes (Hospitalization, Other)
  Sender: FDA-Public Use
  Company Number: FR-BAXTER-2011BH002625

PATIENT
  Age: 22 Year
  Sex: Male

DRUGS (19)
  1. DOXORUBICIN GENERIC [Suspect]
     Route: 042
     Dates: start: 20100202, end: 20100204
  2. EMEND [Suspect]
     Route: 048
     Dates: start: 20100203, end: 20100205
  3. CLOZAPINE [Concomitant]
     Indication: PRODUCT USED FOR UNKNOWN INDICATION
     Route: 048
     Dates: end: 20100201
  4. GAVISCON [Concomitant]
     Indication: PRODUCT USED FOR UNKNOWN INDICATION
     Route: 048
  5. MESNA [Concomitant]
     Indication: PRODUCT USED FOR UNKNOWN INDICATION
     Route: 065
  6. ETOPOSIDE [Suspect]
     Route: 042
     Dates: start: 20100202, end: 20100204
  7. ETOPOSIDE [Suspect]
     Indication: EWING'S SARCOMA
     Route: 042
     Dates: start: 20100111, end: 20100112
  8. VINCRISTINE SULFATE [Suspect]
     Route: 042
     Dates: start: 20100202, end: 20100202
  9. EMEND [Suspect]
     Route: 048
     Dates: start: 20100112, end: 20100114
  10. ZOPHREN [Concomitant]
     Indication: PRODUCT USED FOR UNKNOWN INDICATION
     Route: 065
  11. PRIMPERAN TAB [Concomitant]
     Indication: PRODUCT USED FOR UNKNOWN INDICATION
     Route: 065
  12. FORLAX [Concomitant]
     Indication: PRODUCT USED FOR UNKNOWN INDICATION
     Route: 048
  13. DOXORUBICIN GENERIC [Suspect]
     Indication: EWING'S SARCOMA
     Route: 042
     Dates: start: 20100111, end: 20100112
  14. EMEND [Suspect]
     Indication: PRODUCT USED FOR UNKNOWN INDICATION
     Route: 048
     Dates: start: 20100111, end: 20100111
  15. EMEND [Suspect]
     Route: 048
     Dates: start: 20100202, end: 20100202
  16. HOLOXAN BAXTER [Suspect]
     Route: 042
     Dates: start: 20100202, end: 20100204
  17. VINCRISTINE SULFATE [Suspect]
     Indication: EWING'S SARCOMA
     Route: 042
     Dates: start: 20100111, end: 20100111
  18. HOLOXAN BAXTER [Suspect]
     Indication: EWING'S SARCOMA
     Route: 042
     Dates: start: 20100111, end: 20100112
  19. SOLU-MEDROL [Concomitant]
     Indication: PRODUCT USED FOR UNKNOWN INDICATION
     Route: 042
     Dates: start: 20100111, end: 20100113

REACTIONS (3)
  - DRUG INTERACTION [None]
  - ENCEPHALOPATHY [None]
  - CONVULSION [None]
